FAERS Safety Report 16223531 (Version 6)
Quarter: 2022Q2

REPORT INFORMATION
  Report Type: Spontaneous
  Country: US (occurrence: US)
  Receive Date: 20190422
  Receipt Date: 20220509
  Transmission Date: 20220721
  Serious: No
  Sender: FDA-Public Use
  Company Number: US-PFIZER INC-2019166944

PATIENT
  Age: 44 Year
  Sex: Female
  Weight: 55.782 kg

DRUGS (1)
  1. XELJANZ XR [Suspect]
     Active Substance: TOFACITINIB CITRATE
     Indication: Rheumatoid arthritis
     Dosage: 11 MG, DAILY (TAKE 1 TABLET BY MOUTH EVERY DAY)
     Route: 048

REACTIONS (6)
  - Arthropathy [Unknown]
  - Bradykinesia [Unknown]
  - Pain in extremity [Unknown]
  - Tuberculin test positive [Unknown]
  - Condition aggravated [Unknown]
  - Ill-defined disorder [Unknown]
